FAERS Safety Report 5587209-9 (Version None)
Quarter: 2008Q1

REPORT INFORMATION
  Report Type: 
  Country: None (occurrence: None)
  Receive Date: 20080110
  Receipt Date: 20070421
  Transmission Date: 20080703
  Serious: No
  Sender: FDA-Public Use
  Company Number: US-BRISTOL-MYERS SQUIBB COMPANY-13758768

PATIENT
  Sex: Female

DRUGS (1)
  1. CARDIOLITE [Suspect]
     Indication: CARDIAC STRESS TEST

REACTIONS (4)
  - BURNING SENSATION [None]
  - HEADACHE [None]
  - IRRITABLE BOWEL SYNDROME [None]
  - NAUSEA [None]
